FAERS Safety Report 19657875 (Version 1)
Quarter: 2021Q3

REPORT INFORMATION
  Report Type: Other
  Country: JP (occurrence: JP)
  Receive Date: 20210804
  Receipt Date: 20210804
  Transmission Date: 20211014
  Serious: Yes (Other)
  Sender: FDA-Public Use
  Company Number: JP-ROCHE-2739154

PATIENT
  Age: 54 Year
  Sex: Male

DRUGS (1)
  1. ENTRECTINIB [Suspect]
     Active Substance: ENTRECTINIB
     Indication: SARCOMA
     Route: 048
     Dates: start: 20201211

REACTIONS (4)
  - Taste disorder [Unknown]
  - Swelling [Unknown]
  - Facial paralysis [Not Recovered/Not Resolved]
  - Dizziness [Not Recovered/Not Resolved]

NARRATIVE: CASE EVENT DATE: 20201217
